FAERS Safety Report 8392687-6 (Version None)
Quarter: 2012Q2

REPORT INFORMATION
  Report Type: 
  Country: None (occurrence: None)
  Receive Date: 20120529
  Receipt Date: 20120516
  Transmission Date: 20120825
  Serious: No
  Sender: FDA-Public Use
  Company Number: US-BAYER-2012-050858

PATIENT
  Age: 52 Year

DRUGS (1)
  1. NAPROXEN SODIUM [Suspect]
     Indication: PAIN
     Route: 048

REACTIONS (1)
  - PAIN [None]
